FAERS Safety Report 26025354 (Version 1)
Quarter: 2025Q4

REPORT INFORMATION
  Report Type: Spontaneous
  Country: EU (occurrence: EU)
  Receive Date: 20251111
  Receipt Date: 20251111
  Transmission Date: 20260118
  Serious: Yes (Other)
  Sender: ROCHE
  Company Number: None

PATIENT
  Sex: Male

DRUGS (2)
  1. VENETOCLAX [Suspect]
     Active Substance: VENETOCLAX
     Indication: Chronic lymphocytic leukaemia
     Route: 048
  2. OBINUTUZUMAB [Interacting]
     Active Substance: OBINUTUZUMAB
     Indication: Chronic lymphocytic leukaemia
     Route: 065

REACTIONS (11)
  - Infection [Unknown]
  - Drug interaction [Unknown]
  - Anaemia [Unknown]
  - Hepatotoxicity [Unknown]
  - Tumour lysis syndrome [Unknown]
  - Neutropenia [Unknown]
  - Cytokine release syndrome [Unknown]
  - Haematotoxicity [Unknown]
  - Gastrointestinal disorder [Unknown]
  - Blood phosphorus increased [Unknown]
  - Infusion related reaction [Unknown]
